FAERS Safety Report 21765975 (Version 2)
Quarter: 2023Q1

REPORT INFORMATION
  Report Type: Spontaneous
  Country: JP (occurrence: JP)
  Receive Date: 20221222
  Receipt Date: 20230201
  Transmission Date: 20230417
  Serious: No
  Sender: FDA-Public Use
  Company Number: JP-GSK-JP2022JPN189013

PATIENT

DRUGS (1)
  1. SOTROVIMAB [Suspect]
     Active Substance: SOTROVIMAB
     Dosage: UNK

REACTIONS (2)
  - Condition aggravated [Unknown]
  - Product complaint [Unknown]

NARRATIVE: CASE EVENT DATE: 20220412
